FAERS Safety Report 24934934 (Version 1)
Quarter: 2025Q1

REPORT INFORMATION
  Report Type: Spontaneous
  Country: FR (occurrence: FR)
  Receive Date: 20250206
  Receipt Date: 20250206
  Transmission Date: 20250408
  Serious: Yes (Hospitalization)
  Sender: BOEHRINGER INGELHEIM
  Company Number: None

PATIENT
  Age: 71 Year
  Sex: Female
  Weight: 75 kg

DRUGS (11)
  1. SYNJARDY [Suspect]
     Active Substance: EMPAGLIFLOZIN\METFORMIN HYDROCHLORIDE
     Indication: Type 2 diabetes mellitus
     Dates: start: 20230101, end: 20231206
  2. METEOXANE, capsule [Concomitant]
     Indication: Diarrhoea
     Dates: start: 2023, end: 20231206
  3. HUMALOG 200 UI/ml KWIKPEN, solution for injection in pre-filled pen [Concomitant]
     Indication: Type 2 diabetes mellitus
     Dates: start: 2023, end: 20231206
  4. TRULICITY 1,5 mg, injectable solution in pre-filled syringe [Concomitant]
     Indication: Type 2 diabetes mellitus
     Dates: start: 2023, end: 20231206
  5. RAMIPRIL [Concomitant]
     Active Substance: RAMIPRIL
     Indication: Hypertension
     Dates: start: 2023, end: 20231206
  6. PANTOPRAZOLE [Concomitant]
     Active Substance: PANTOPRAZOLE
     Indication: Product used for unknown indication
     Dates: start: 2023, end: 20231206
  7. POTASSIUM CHLORIDE [Concomitant]
     Active Substance: POTASSIUM CHLORIDE
     Indication: Mineral supplementation
     Dates: start: 2023, end: 20231206
  8. AMLODIPINE [Concomitant]
     Active Substance: AMLODIPINE BESYLATE
     Indication: Hypertension
     Dates: start: 2023, end: 20231206
  9. ATENOLOL [Concomitant]
     Active Substance: ATENOLOL
     Indication: Hypertension
     Dates: start: 2023, end: 20231206
  10. ATORVASTATIN [Concomitant]
     Active Substance: ATORVASTATIN
     Indication: Cardiovascular event prophylaxis
     Dates: start: 2023, end: 20231206
  11. ALLOPURINOL [Concomitant]
     Active Substance: ALLOPURINOL
     Indication: Product used for unknown indication
     Dates: start: 2023, end: 20231206

REACTIONS (2)
  - Lactic acidosis [Recovered/Resolved]
  - Drug level above therapeutic [Recovered/Resolved]

NARRATIVE: CASE EVENT DATE: 20231206
